FAERS Safety Report 8250877-7 (Version None)
Quarter: 2012Q2

REPORT INFORMATION
  Report Type: 
  Country: None (occurrence: None)
  Receive Date: 20120402
  Receipt Date: 20120323
  Transmission Date: 20120825
  Serious: Yes (Hospitalization)
  Sender: FDA-Public Use
  Company Number: US-ASTRAZENECA-2012SE19843

PATIENT
  Sex: Male

DRUGS (1)
  1. SEROQUEL [Suspect]
     Route: 048

REACTIONS (5)
  - PLATELET DISORDER [None]
  - H1N1 INFLUENZA [None]
  - MALAISE [None]
  - PLASMAPHERESIS [None]
  - MUSCLE DISORDER [None]
